FAERS Safety Report 20696924 (Version 1)
Quarter: 2022Q2

REPORT INFORMATION
  Report Type: Spontaneous
  Country: US (occurrence: US)
  Receive Date: 20220411
  Receipt Date: 20220411
  Transmission Date: 20220721
  Serious: Yes (Hospitalization)
  Sender: FDA-Public Use
  Company Number: US-Adamas_Pharmaceuticals-USA-POI1235202200004

PATIENT
  Age: 84 Year
  Sex: Male

DRUGS (2)
  1. OSMOLEX ER [Suspect]
     Active Substance: AMANTADINE
     Indication: Parkinson^s disease
     Dates: start: 20220127
  2. OSMOLEX ER [Suspect]
     Active Substance: AMANTADINE
     Dates: start: 20211124, end: 20220125

REACTIONS (3)
  - Aggression [Recovered/Resolved]
  - Hallucination, visual [Recovered/Resolved]
  - Candida infection [Unknown]

NARRATIVE: CASE EVENT DATE: 20220111
